FAERS Safety Report 7221435-8 (Version None)
Quarter: 2011Q1

REPORT INFORMATION
  Report Type: 
  Country: None (occurrence: None)
  Receive Date: 20110112
  Receipt Date: 20110104
  Transmission Date: 20110831
  Serious: Yes (Other)
  Sender: FDA-Public Use
  Company Number: ES-ELI_LILLY_AND_COMPANY-ES201101000847

PATIENT
  Sex: Female
  Weight: 65 kg

DRUGS (5)
  1. DEZACOR [Concomitant]
     Indication: RHEUMATOID ARTHRITIS
     Dosage: UNK, DAILY (1/D)
     Route: 048
  2. TRAMADOL [Concomitant]
     Indication: RHEUMATOID ARTHRITIS
     Dosage: UNK, AS NEEDED
     Route: 048
  3. LEDERFOLIN [Concomitant]
     Dosage: UNK, DAILY (1/D)
     Route: 048
  4. METOTREXATO [Concomitant]
     Indication: RHEUMATOID ARTHRITIS
     Dosage: 4 TAB/ WEEKLY (1/W)
     Route: 048
  5. FORTEO [Suspect]
     Indication: OSTEOPOROSIS
     Dosage: 20 UG, DAILY (1/D)
     Route: 058
     Dates: start: 20101111

REACTIONS (2)
  - POST PROCEDURAL INFECTION [None]
  - INJECTION SITE HAEMATOMA [None]
